FAERS Safety Report 7550802-8 (Version None)
Quarter: 2011Q2

REPORT INFORMATION
  Report Type: 
  Country: None (occurrence: None)
  Receive Date: 20110609
  Receipt Date: 20110527
  Transmission Date: 20111010
  Serious: Yes (Hospitalization)
  Sender: FDA-Public Use
  Company Number: UTC-007505

PATIENT
  Age: 34 Year
  Sex: Female
  Weight: 92.18 kg

DRUGS (4)
  1. REMODULIN [Suspect]
     Indication: SYSTEMIC LUPUS ERYTHEMATOSUS
     Dosage: 190.8 UG/KG (0.1325 UG/KG,1 IN 1 MIN), INTRANEOUS
     Route: 042
     Dates: start: 20090204
  2. REVATIO [Concomitant]
  3. TRACLEER [Concomitant]
  4. COUMADIN [Concomitant]

REACTIONS (2)
  - SUTURE RELATED COMPLICATION [None]
  - SECRETION DISCHARGE [None]
